FAERS Safety Report 8172152 (Version 2)
Quarter: 2013Q2

REPORT INFORMATION
  Report Type: Spontaneous
  Country: PT (occurrence: None)
  Receive Date: 20110927
  Receipt Date: 20130506
  Transmission Date: 20140414
  Serious: Yes (Hospitalization)
  Sender: FDA-Public Use
  Company Number: 1045320

PATIENT
  Sex: Male

DRUGS (4)
  1. DACARBAZINE [Suspect]
     Indication: HODGKIN^S DISEASE
  2. VINBLASTINE SULFATE [Suspect]
     Indication: HODGKIN^S DISEASE
  3. ADRIAMYCIN [Suspect]
     Indication: HODGKIN^S DISEASE
  4. BLEOMYCIN SULFATE [Suspect]
     Indication: HODGKIN^S DISEASE

REACTIONS (3)
  - STATUS EPILEPTICUS [None]
  - VASOGENIC CEREBRAL OEDEMA [None]
  - CYTOTOXIC OEDEMA [None]
